FAERS Safety Report 5686479-6 (Version None)
Quarter: 2008Q1

REPORT INFORMATION
  Report Type: 
  Country: None (occurrence: None)
  Receive Date: 20080328
  Receipt Date: 20070629
  Transmission Date: 20080703
  Serious: No
  Sender: FDA-Public Use
  Company Number: US-BAYER-US-2007-024398

PATIENT
  Age: 26 Year
  Sex: Female
  Weight: 64 kg

DRUGS (3)
  1. MIRENA [Suspect]
     Indication: CONTRACEPTION
     Route: 015
     Dates: start: 20070509, end: 20070629
  2. MIRENA [Suspect]
     Indication: PAIN
     Route: 015
     Dates: start: 20070629
  3. IBUPROFEN [Concomitant]
     Indication: PAIN

REACTIONS (3)
  - ABDOMINAL PAIN LOWER [None]
  - INFLUENZA LIKE ILLNESS [None]
  - IUCD COMPLICATION [None]
